FAERS Safety Report 25296538 (Version 1)
Quarter: 2025Q2

REPORT INFORMATION
  Report Type: Spontaneous
  Country: US (occurrence: US)
  Receive Date: 20250511
  Receipt Date: 20250511
  Transmission Date: 20250717
  Serious: No
  Sender: SANOFI AVENTIS
  Company Number: US-SA-2025SA131940

PATIENT
  Age: 70 Year
  Sex: Female

DRUGS (14)
  1. DUPIXENT [Suspect]
     Active Substance: DUPILUMAB
     Indication: Neurodermatitis
     Dosage: INJECT 300MG SUBCUTANEOUSLY EVERY 2 WEEKS
     Route: 058
  2. ASPIRIN [Concomitant]
     Active Substance: ASPIRIN
  3. EZETIMIBE [Concomitant]
     Active Substance: EZETIMIBE
  4. FLUOXETINE HYDROCHLORIDE [Concomitant]
     Active Substance: FLUOXETINE HYDROCHLORIDE
  5. HYDROMORPHONE HCL [Concomitant]
     Active Substance: HYDROMORPHONE HYDROCHLORIDE
  6. IRON [Concomitant]
     Active Substance: IRON
  7. LEVOTHYROXINE [Concomitant]
     Active Substance: LEVOTHYROXINE
  8. MAGNESIUM [Concomitant]
     Active Substance: MAGNESIUM
  9. METOPROLOL SUCCINATE [Concomitant]
     Active Substance: METOPROLOL SUCCINATE
  10. VITAMINS [Concomitant]
     Active Substance: VITAMINS
  11. PRAVASTATIN [Concomitant]
     Active Substance: PRAVASTATIN
  12. PREGABALIN [Concomitant]
     Active Substance: PREGABALIN
  13. VALSARTAN [Concomitant]
     Active Substance: VALSARTAN
  14. VITAMIN B12 [Concomitant]
     Active Substance: CYANOCOBALAMIN

REACTIONS (2)
  - Diarrhoea [Unknown]
  - Weight decreased [Unknown]

NARRATIVE: CASE EVENT DATE: 20250401
